FAERS Safety Report 5598618-6 (Version None)
Quarter: 2007Q4

REPORT INFORMATION
  Report Type: 
  Country: None (occurrence: None)
  Receive Date: 20071226
  Receipt Date: 20071004
  Transmission Date: 20080405
  Serious: No
  Sender: FDA-Public Use
  Company Number: 2007PV033540

PATIENT
  Age: 57 Year
  Sex: Female

DRUGS (7)
  1. SYMLIN [Suspect]
     Indication: TYPE 2 DIABETES MELLITUS
     Dosage: 60, 45, 30, 15 MCG, TID, SC
     Route: 058
     Dates: start: 20070101, end: 20070101
  2. SYMLIN [Suspect]
     Indication: TYPE 2 DIABETES MELLITUS
     Dosage: 60, 45, 30, 15 MCG, TID, SC
     Route: 058
     Dates: start: 20070701, end: 20070101
  3. SYMLIN [Suspect]
     Indication: TYPE 2 DIABETES MELLITUS
     Dosage: 60, 45, 30, 15 MCG, TID, SC
     Route: 058
     Dates: start: 20070801, end: 20070801
  4. SYMLIN [Suspect]
     Indication: TYPE 2 DIABETES MELLITUS
     Dosage: 60, 45, 30, 15 MCG, TID, SC
     Route: 058
     Dates: start: 20070801, end: 20070830
  5. LANTUS [Concomitant]
  6. GLUCOPHAGE/GLYBURIDE [Concomitant]
  7. PILL [Concomitant]

REACTIONS (1)
  - INJECTION SITE PAIN [None]
